FAERS Safety Report 10025670 (Version 1)
Quarter: 2014Q1

REPORT INFORMATION
  Report Type: Spontaneous
  Country: IT (occurrence: None)
  Receive Date: 20140314
  Receipt Date: 20140314
  Transmission Date: 20141002
  Serious: Yes (Other)
  Sender: FDA-Public Use
  Company Number: FK201400785

PATIENT
  Age: 63 Year
  Sex: 0

DRUGS (3)
  1. IRINOTECAN [Suspect]
     Indication: PANCREATIC CARCINOMA
     Dosage: 180, 180 MG/MQ BODY SURFACE
     Route: 042
     Dates: start: 20131125, end: 20140117
  2. OXALIPLATIN [Suspect]
     Indication: PANCREATIC CARCINOMA
     Dosage: 85, 85 MG/MQ BODY SURFACE
     Route: 042
     Dates: start: 20131125, end: 20140117
  3. FLUOROURACIL [Suspect]
     Indication: PANCREATIC CARCINOMA
     Dosage: 2400, 2400 MG/MQ BODY SURFACE
     Route: 042
     Dates: start: 20131125, end: 20140117

REACTIONS (1)
  - Pulmonary embolism [None]
